FAERS Safety Report 7006247-2 (Version None)
Quarter: 2010Q3

REPORT INFORMATION
  Report Type: 
  Country: None (occurrence: None)
  Receive Date: 20100921
  Receipt Date: 20100913
  Transmission Date: 20110219
  Serious: No
  Sender: FDA-Public Use
  Company Number: US-PFIZER INC-2010115750

PATIENT
  Sex: Female

DRUGS (2)
  1. CHANTIX [Suspect]
     Dosage: UNK
     Route: 048
  2. VALIUM [Concomitant]
     Indication: ANXIETY
     Dosage: UNK
     Route: 048

REACTIONS (1)
  - INITIAL INSOMNIA [None]
